FAERS Safety Report 9658178 (Version 1)
Quarter: 2013Q4

REPORT INFORMATION
  Report Type: Spontaneous
  Country: US (occurrence: US)
  Receive Date: 20131030
  Receipt Date: 20131030
  Transmission Date: 20140711
  Serious: No
  Sender: FDA-Public Use
  Company Number: US-PURDUE-USA-2012-0080927

PATIENT
  Sex: Female

DRUGS (2)
  1. OXYCONTIN (NDA 22-272) [Suspect]
     Indication: PAIN
     Dosage: 20 MCG, UNK
  2. OXYCODONE HCL IR CAPSULES [Suspect]
     Indication: ANALGESIC THERAPY
     Dosage: 30 MG, UNK
     Dates: start: 201201

REACTIONS (3)
  - Drug dispensing error [Unknown]
  - Nausea [Unknown]
  - Inadequate analgesia [Unknown]
